FAERS Safety Report 10305578 (Version 1)
Quarter: 2014Q3

REPORT INFORMATION
  Report Type: Spontaneous
  Country: GB (occurrence: GB)
  Receive Date: 20140715
  Receipt Date: 20140715
  Transmission Date: 20150326
  Serious: Yes (Other)
  Sender: FDA-Public Use
  Company Number: GB-ACTAVIS-2014-15000

PATIENT
  Age: 56 Year
  Sex: Female

DRUGS (2)
  1. TRIAMCINOLONE ACETONIDE (AMALLC) [Suspect]
     Active Substance: TRIAMCINOLONE ACETONIDE
     Indication: OSTEOARTHRITIS
     Dosage: UNKNOWN, ADMINISTERED AT 6 MONTHS INTERVALS
     Route: 014
  2. LIDOCAINE. [Concomitant]
     Active Substance: LIDOCAINE
     Indication: OSTEOARTHRITIS
     Dosage: 1% INJECTIONS, ADMINISTERED AT 6 MONTHS INTERVALS
     Route: 014

REACTIONS (2)
  - Skin ulcer [Recovered/Resolved]
  - Joint dislocation [Recovered/Resolved]
